FAERS Safety Report 5723902-2 (Version None)
Quarter: 2008Q2

REPORT INFORMATION
  Report Type: 
  Country: None (occurrence: None)
  Receive Date: 20080430
  Receipt Date: 20080424
  Transmission Date: 20081010
  Serious: Yes (Hospitalization, Other)
  Sender: FDA-Public Use
  Company Number: US-ASTRAZENECA-2007UW17004

PATIENT
  Age: 55 Year
  Sex: Female

DRUGS (3)
  1. SEROQUEL [Suspect]
     Route: 048
  2. SEROQUEL [Suspect]
     Route: 048
  3. ANTIDEPRESSANT [Concomitant]

REACTIONS (4)
  - BLOOD PROLACTIN INCREASED [None]
  - EXCESSIVE EYE BLINKING [None]
  - HYPOTENSION [None]
  - PITUITARY TUMOUR BENIGN [None]
